FAERS Safety Report 7499427-3 (Version None)
Quarter: 2011Q2

REPORT INFORMATION
  Report Type: 
  Country: None (occurrence: None)
  Receive Date: 20110524
  Receipt Date: 20110510
  Transmission Date: 20111010
  Serious: Yes (Other)
  Sender: FDA-Public Use
  Company Number: PHHY2011NL40341

PATIENT
  Sex: Male

DRUGS (2)
  1. ZOMETA [Suspect]
     Dosage: UNK
     Dates: start: 20110412
  2. ZOMETA [Suspect]
     Indication: METASTASES TO BONE
     Dosage: 4MG/5ML
     Dates: start: 20100803

REACTIONS (5)
  - NEOPLASM MALIGNANT [None]
  - CONFUSIONAL STATE [None]
  - FEELING ABNORMAL [None]
  - DELIRIUM [None]
  - DISEASE PROGRESSION [None]
